FAERS Safety Report 9426273 (Version 2)
Quarter: 2013Q3

REPORT INFORMATION
  Report Type: Spontaneous
  Country: FR (occurrence: FR)
  Receive Date: 20130730
  Receipt Date: 20130812
  Transmission Date: 20140515
  Serious: Yes (Hospitalization)
  Sender: FDA-Public Use
  Company Number: FR-ASTRAZENECA-2013SE55936

PATIENT
  Age: 47 Year
  Sex: Male

DRUGS (2)
  1. ZESTORETIC [Suspect]
     Indication: HYPERTENSION
     Dosage: 1 DF DAILY, AS LONG LASTING TREATMENT
     Route: 048
     Dates: end: 201307
  2. DEPAKINE [Concomitant]
     Dosage: LONG LASTING TREATMENT

REACTIONS (1)
  - Angioedema [Recovered/Resolved]
